FAERS Safety Report 9364747 (Version 2)
Quarter: 2013Q3

REPORT INFORMATION
  Report Type: Report from Study
  Country: DK (occurrence: DK)
  Receive Date: 20130624
  Receipt Date: 20130704
  Transmission Date: 20140515
  Serious: Yes (Other)
  Sender: FDA-Public Use
  Company Number: DK-JNJFOC-20130613568

PATIENT
  Age: 56 Year
  Sex: Female

DRUGS (3)
  1. NICORETTE [Suspect]
     Indication: SMOKING CESSATION THERAPY
     Route: 048
  2. NICORETTE INVISI [Suspect]
     Route: 062
  3. NICORETTE INVISI [Suspect]
     Indication: SMOKING CESSATION THERAPY
     Route: 062

REACTIONS (2)
  - Gastric ulcer [Unknown]
  - Drug ineffective [Unknown]
